FAERS Safety Report 11178473 (Version 1)
Quarter: 2015Q2

REPORT INFORMATION
  Report Type: Spontaneous
  Country: US (occurrence: US)
  Receive Date: 20150610
  Receipt Date: 20150610
  Transmission Date: 20150821
  Serious: No
  Sender: FDA-Public Use
  Company Number: US-009507513-1506USA005176

PATIENT
  Age: 17 Year
  Sex: Female
  Weight: 65.76 kg

DRUGS (1)
  1. IMPLANON [Suspect]
     Active Substance: ETONOGESTREL
     Indication: CONTRACEPTION
     Dosage: DOSE/FREQUENCY: UNSPECIFIED, THERAPY ROUTE: UNSPECIFIED
     Dates: start: 201207

REACTIONS (2)
  - Breast mass [Unknown]
  - Breast pain [Unknown]

NARRATIVE: CASE EVENT DATE: 201302
